FAERS Safety Report 6357941-8 (Version None)
Quarter: 2009Q3

REPORT INFORMATION
  Report Type: 
  Country: None (occurrence: None)
  Receive Date: 20090911
  Receipt Date: 20090826
  Transmission Date: 20100115
  Serious: Yes (Life-Threatening, Other)
  Sender: FDA-Public Use
  Company Number: DSA_40519_2009

PATIENT
  Sex: Male

DRUGS (4)
  1. DILTIAZEM [Suspect]
     Indication: PROPHYLAXIS
     Dosage: (120 MG BID ORAL)
     Route: 048
     Dates: start: 20081007
  2. ZOCOR [Concomitant]
  3. KARDEGIC /00002703/ [Concomitant]
  4. CORVASAL /00547101/ [Concomitant]

REACTIONS (3)
  - ARTERIOSPASM CORONARY [None]
  - DRUG INEFFECTIVE [None]
  - MEDICATION RESIDUE [None]
